FAERS Safety Report 6558628-9 (Version None)
Quarter: 2010Q1

REPORT INFORMATION
  Report Type: 
  Country: None (occurrence: None)
  Receive Date: 20100128
  Receipt Date: 20100128
  Transmission Date: 20100710
  Serious: No
  Sender: FDA-Public Use
  Company Number: None

PATIENT
  Age: 46 Year
  Sex: Female
  Weight: 110.6777 kg

DRUGS (1)
  1. SYMBICORT [Suspect]
     Indication: ASTHMA
     Dosage: 1 PUFF 2X DAY INTRA
     Dates: start: 20100118, end: 20100124

REACTIONS (13)
  - AGITATION [None]
  - CHILLS [None]
  - FOREIGN BODY [None]
  - HAEMOPTYSIS [None]
  - INCREASED UPPER AIRWAY SECRETION [None]
  - INSOMNIA [None]
  - LARYNGITIS [None]
  - NASAL DISORDER [None]
  - NAUSEA [None]
  - PYREXIA [None]
  - SPUTUM DISCOLOURED [None]
  - SWELLING [None]
  - TREMOR [None]
